FAERS Safety Report 25874487 (Version 1)
Quarter: 2025Q4

REPORT INFORMATION
  Report Type: Spontaneous
  Country: US (occurrence: None)
  Receive Date: 20251002
  Receipt Date: 20251002
  Transmission Date: 20260118
  Serious: Yes (Hospitalization)
  Sender: FDA-CTU
  Company Number: None

PATIENT
  Age: 26 Year
  Sex: Male
  Weight: 67.95 kg

DRUGS (2)
  1. COBENFY [Suspect]
     Active Substance: TROSPIUM CHLORIDE\XANOMELINE
  2. ABILIFY ASIMTUFII [Concomitant]
     Active Substance: ARIPIPRAZOLE

REACTIONS (2)
  - Small intestinal obstruction [None]
  - Gastrointestinal motility disorder [None]

NARRATIVE: CASE EVENT DATE: 20250927
